FAERS Safety Report 19359840 (Version 1)
Quarter: 2021Q2

REPORT INFORMATION
  Report Type: Spontaneous
  Country: JP (occurrence: JP)
  Receive Date: 20210601
  Receipt Date: 20210601
  Transmission Date: 20210717
  Serious: No
  Sender: FDA-Public Use
  Company Number: JP-ELI_LILLY_AND_COMPANY-JP202105013492

PATIENT
  Sex: Female

DRUGS (2)
  1. URSO [Concomitant]
     Active Substance: URSODIOL
  2. DULOXETINE HYDROCHLORIDE. [Suspect]
     Active Substance: DULOXETINE HYDROCHLORIDE
     Indication: BACK PAIN
     Route: 048

REACTIONS (1)
  - Hepatic function abnormal [Unknown]
